FAERS Safety Report 4909245-5 (Version None)
Quarter: 2006Q1

REPORT INFORMATION
  Report Type: 
  Country: None (occurrence: None)
  Receive Date: 20060209
  Receipt Date: 20060209
  Transmission Date: 20060701
  Serious: Yes (Hospitalization)
  Sender: FDA-Public Use
  Company Number: None

PATIENT
  Age: 57 Year
  Sex: Male

DRUGS (5)
  1. DOCETAXEL 35 MG/M2 [Suspect]
     Indication: LARYNGEAL CANCER RECURRENT
     Dosage: DAYS 1,8,15 Q 28 DAYS
     Dates: start: 20060111
  2. DOCETAXEL 35 MG/M2 [Suspect]
     Indication: LARYNGEAL CANCER RECURRENT
     Dosage: DAYS 1,8,15 Q 28 DAYS
     Dates: start: 20060118
  3. DOCETAXEL 35 MG/M2 [Suspect]
     Indication: LARYNGEAL CANCER RECURRENT
     Dosage: DAYS 1,8,15 Q 28 DAYS
     Dates: start: 20060125
  4. IRESSA [Suspect]
     Indication: LARYNGEAL CANCER RECURRENT
     Dosage: DAILY, 25 MG
     Dates: start: 20060111
  5. PLACEBO [Suspect]
     Dosage: DAILY, 250 MG
     Dates: start: 20060111

REACTIONS (7)
  - ASPIRATION [None]
  - CHEST X-RAY ABNORMAL [None]
  - DEHYDRATION [None]
  - FATIGUE [None]
  - INFECTION [None]
  - NAUSEA [None]
  - SECRETION DISCHARGE [None]
